FAERS Safety Report 8671468 (Version 2)
Quarter: 2014Q2

REPORT INFORMATION
  Report Type: Spontaneous
  Country: PL (occurrence: PL)
  Receive Date: 20120718
  Receipt Date: 20140425
  Transmission Date: 20141212
  Serious: Yes (Other)
  Sender: FDA-Public Use
  Company Number: PHHY2012PL059586

PATIENT
  Age: 24 Year
  Sex: Male

DRUGS (29)
  1. METOCLOPRAMIDE [Suspect]
     Dosage: 10 MG, UNK
  2. METOCLOPRAMIDE [Suspect]
     Dosage: 10 MG, BID
     Route: 042
  3. METOCLOPRAMIDE [Suspect]
     Dosage: 40 MG, BID
     Route: 042
  4. METOCLOPRAMIDE [Suspect]
     Dosage: 20 MG DAILY
     Route: 042
  5. METOCLOPRAMIDE [Suspect]
     Dosage: 20 MG, BID
     Route: 042
  6. HALOPERIDOL [Suspect]
     Dosage: 12 GTT, UNK
     Route: 048
  7. HALOPERIDOL [Suspect]
     Dosage: 5 GTT, UNK
     Route: 048
  8. PROMAZINE [Suspect]
     Dosage: 100 MG, UNK
     Route: 030
  9. MANNITOL [Concomitant]
  10. POTASSIUM CHLORIDE [Concomitant]
  11. MAGNESIUM SULFATE [Concomitant]
  12. NITROGLYCERIN [Concomitant]
  13. FUROSEMIDE [Concomitant]
  14. PANTOPRAZOLE [Concomitant]
  15. PIRACETAM [Concomitant]
  16. DEXAVEN [Concomitant]
  17. HEPARIN [Concomitant]
  18. AMIODARON [Concomitant]
  19. METOPROLOL [Concomitant]
  20. CEFAZOLIN [Concomitant]
  21. CLINDAMYCIN [Concomitant]
  22. AMIKACIN [Concomitant]
  23. TRILAC [Concomitant]
  24. FENTANYL [Concomitant]
  25. MIDAZOLAM [Concomitant]
  26. PLASMA [Concomitant]
  27. PLATELETS, HUMAN BLOOD [Concomitant]
  28. GLUCOSE [Concomitant]
  29. VOLUVEN                            /06404801/ [Concomitant]

REACTIONS (12)
  - Extrapyramidal disorder [Recovered/Resolved]
  - Dystonia [Unknown]
  - Psychomotor hyperactivity [Recovered/Resolved]
  - Tremor [Recovered/Resolved]
  - Dyskinesia [Recovered/Resolved]
  - Dysarthria [Recovered/Resolved]
  - Fear [Recovered/Resolved]
  - Tachycardia [Recovered/Resolved]
  - Anxiety [Recovered/Resolved]
  - Hyperhidrosis [Recovered/Resolved]
  - Mydriasis [Recovered/Resolved]
  - Joint dislocation [Recovered/Resolved]
